FAERS Safety Report 18262908 (Version 1)
Quarter: 2020Q3

REPORT INFORMATION
  Report Type: Spontaneous
  Country: US (occurrence: US)
  Receive Date: 20200914
  Receipt Date: 20200914
  Transmission Date: 20201103
  Serious: No
  Sender: FDA-Public Use
  Company Number: US-JNJFOC-20200907369

PATIENT
  Sex: Female
  Weight: 82.63 kg

DRUGS (4)
  1. DURAGESIC [Suspect]
     Active Substance: FENTANYL
     Indication: PRODUCT USED FOR UNKNOWN INDICATION
     Dosage: EXAMPLE IF 50 MCG IS STARTED ON SUNDAY, 100 MCG IS APPLIED ON MONDAY
     Route: 062
  2. DURAGESIC [Suspect]
     Active Substance: FENTANYL
  3. DURAGESIC [Suspect]
     Active Substance: FENTANYL
     Indication: PRODUCT USED FOR UNKNOWN INDICATION
     Dosage: FOR EXAMPLE IF 50 MCG IS STARTED ON SUNDAY, 100 MCG IS APPLIED ON MONDAY
     Route: 062
  4. DURAGESIC [Suspect]
     Active Substance: FENTANYL

REACTIONS (2)
  - Product use issue [Unknown]
  - Off label use [Unknown]
